FAERS Safety Report 21672097 (Version 1)
Quarter: 2022Q4

REPORT INFORMATION
  Report Type: Report from Study
  Country: GB (occurrence: GB)
  Receive Date: 20221202
  Receipt Date: 20221202
  Transmission Date: 20230112
  Serious: Yes (Other)
  Sender: FDA-Public Use
  Company Number: GB-002147023-NVSC2022GB190282

PATIENT
  Sex: Female

DRUGS (1)
  1. MAYZENT [Suspect]
     Active Substance: SIPONIMOD
     Indication: Multiple sclerosis
     Dosage: 1 MG, QD (5 DAY TITRATION PACK TO START)
     Route: 048
     Dates: start: 20220824

REACTIONS (9)
  - Oedema peripheral [Unknown]
  - Neuralgia [Unknown]
  - Paraesthesia [Unknown]
  - Heat illness [Unknown]
  - Mobility decreased [Unknown]
  - Blood pressure increased [Unknown]
  - Dizziness exertional [Unknown]
  - Heart rate decreased [Unknown]
  - Pain in extremity [Unknown]
